FAERS Safety Report 18354925 (Version 1)
Quarter: 2020Q4

REPORT INFORMATION
  Report Type: Report from Study
  Country: DE (occurrence: DE)
  Receive Date: 20201007
  Receipt Date: 20201007
  Transmission Date: 20210114
  Serious: Yes (Hospitalization, Other)
  Sender: FDA-Public Use
  Company Number: DE-BRISTOL-MYERS SQUIBB COMPANY-BMS-2020-080390

PATIENT
  Sex: Male
  Weight: 82 kg

DRUGS (55)
  1. NIVOLUMAB [Suspect]
     Active Substance: NIVOLUMAB
     Dosage: 480 MILLIGRAM
     Route: 042
     Dates: start: 20200526, end: 20200831
  2. VOTRIENT [Suspect]
     Active Substance: PAZOPANIB HYDROCHLORIDE
     Dosage: 400 MILLIGRAM, QD
     Route: 048
     Dates: start: 20180126, end: 20180208
  3. VOTRIENT [Suspect]
     Active Substance: PAZOPANIB HYDROCHLORIDE
     Dosage: 400 MILLIGRAM, QD
     Route: 048
     Dates: start: 20171109, end: 20171223
  4. VITAMIN B12 [Concomitant]
     Active Substance: CYANOCOBALAMIN
     Indication: PROPHYLAXIS
     Dosage: 1000 MICROGRAM, QD
     Route: 048
     Dates: start: 20190415
  5. CLEXANE [Concomitant]
     Active Substance: ENOXAPARIN SODIUM
     Dosage: 0.5 ML, BID (20MG/-40MG/-40 MG DUO)
     Route: 058
     Dates: start: 20160925, end: 201712
  6. RAMIPRIL-RATIOPHARM [Concomitant]
     Indication: CORONARY ARTERY DISEASE
     Dosage: 2.5 MILLIGRAM, QD
     Route: 048
     Dates: start: 20110613, end: 20190414
  7. VOTRIENT [Suspect]
     Active Substance: PAZOPANIB HYDROCHLORIDE
     Dosage: 400 MILLIGRAM, QD
     Route: 048
     Dates: start: 20181109, end: 20181225
  8. VOTRIENT [Suspect]
     Active Substance: PAZOPANIB HYDROCHLORIDE
     Dosage: 480 MILLIGRAM, QD
     Route: 042
     Dates: start: 20200319
  9. VOTRIENT [Suspect]
     Active Substance: PAZOPANIB HYDROCHLORIDE
     Dosage: 400 MILLIGRAM, QD
     Route: 048
     Dates: start: 20160815, end: 20160830
  10. TRAMAL [Concomitant]
     Active Substance: TRAMADOL
     Indication: PROPHYLAXIS
     Dosage: 30 INTERNATIONAL UNIT PRN
     Route: 048
     Dates: start: 20171006, end: 20190414
  11. CLEXANE [Concomitant]
     Active Substance: ENOXAPARIN SODIUM
     Indication: PROPHYLAXIS
     Dosage: 20 MILLIGRAM
     Route: 065
  12. TIOBLIS [Concomitant]
     Active Substance: ATORVASTATIN CALCIUM\EZETIMIBE
     Indication: LIPIDS INCREASED
     Dosage: 50 MILLIGRAM, QD
     Route: 048
     Dates: start: 20160714
  13. RENAGEL [Concomitant]
     Active Substance: SEVELAMER HYDROCHLORIDE
     Indication: PROPHYLAXIS
     Dosage: 1600 MILLIGRAM, QD
     Route: 048
     Dates: start: 20190415
  14. ATORVASTATIN [Concomitant]
     Active Substance: ATORVASTATIN
     Indication: CORONARY ARTERY DISEASE
     Dosage: 20 MILLIGRAM, QD
     Route: 048
     Dates: start: 20190415
  15. NITROLINGUAL [Concomitant]
     Active Substance: NITROGLYCERIN
     Indication: CORONARY ARTERY DISEASE
     Dosage: 0.4 MILLIGRAM PRN
     Route: 048
     Dates: start: 19911104
  16. VOTRIENT [Suspect]
     Active Substance: PAZOPANIB HYDROCHLORIDE
     Indication: METASTATIC RENAL CELL CARCINOMA
     Dosage: 400 MILLIGRAM, QD
     Route: 048
     Dates: start: 20190323, end: 20190507
  17. VOTRIENT [Suspect]
     Active Substance: PAZOPANIB HYDROCHLORIDE
     Dosage: 800 MILLIGRAM, QD
     Route: 048
     Dates: start: 20160809, end: 20160814
  18. VOTRIENT [Suspect]
     Active Substance: PAZOPANIB HYDROCHLORIDE
     Dosage: 400 MILLIGRAM, QD
     Route: 048
     Dates: start: 20180209, end: 20180215
  19. VOTRIENT [Suspect]
     Active Substance: PAZOPANIB HYDROCHLORIDE
     Dosage: 800 MILLIGRAM, QD
     Route: 048
     Dates: start: 20160831, end: 20160924
  20. VOTRIENT [Suspect]
     Active Substance: PAZOPANIB HYDROCHLORIDE
     Dosage: 400 MILLIGRAM, QD
     Route: 048
     Dates: start: 20171020, end: 20171108
  21. MARCUMAR [Concomitant]
     Active Substance: PHENPROCOUMON
     Indication: CORONARY ARTERY DISEASE
     Dosage: 3 MILLIGRAM, QD
     Route: 048
     Dates: start: 20161028, end: 20180102
  22. ATORVASTATIN PUREN [Concomitant]
     Indication: LIPIDS INCREASED
     Dosage: 50 MILLIGRAM, QD
     Route: 048
     Dates: start: 20160714, end: 20190414
  23. NIVOLUMAB [Suspect]
     Active Substance: NIVOLUMAB
     Indication: METASTATIC RENAL CELL CARCINOMA
     Dosage: 480 MILLIGRAM
     Route: 042
     Dates: start: 20200319, end: 20200429
  24. VOTRIENT [Suspect]
     Active Substance: PAZOPANIB HYDROCHLORIDE
     Dosage: 800 MILLIGRAM, QD
     Route: 048
     Dates: start: 20161109, end: 20170208
  25. TORASEMID [Concomitant]
     Active Substance: TORSEMIDE
     Indication: CORONARY ARTERY DISEASE
     Dosage: 10 MILLIGRAM, QD
     Route: 048
     Dates: start: 20190415
  26. SORTIS [Concomitant]
     Active Substance: ATORVASTATIN
     Indication: LIPIDS INCREASED
     Dosage: 20 MILLIGRAM, QD
     Route: 048
     Dates: start: 20160613, end: 201805
  27. VOTRIENT [Suspect]
     Active Substance: PAZOPANIB HYDROCHLORIDE
     Dosage: 400 MILLIGRAM, QD
     Route: 048
     Dates: start: 20180509, end: 20180808
  28. VOTRIENT [Suspect]
     Active Substance: PAZOPANIB HYDROCHLORIDE
     Dosage: 400 MILLIGRAM, QD
     Route: 048
     Dates: start: 20191109, end: 20200318
  29. VOTRIENT [Suspect]
     Active Substance: PAZOPANIB HYDROCHLORIDE
     Dosage: 400 MILLIGRAM, QD
     Route: 048
     Dates: start: 20170404, end: 20170508
  30. INSULIN GLARGINE [Concomitant]
     Active Substance: INSULIN GLARGINE
     Indication: TYPE 2 DIABETES MELLITUS
     Dosage: 16 INTERNATIONAL UNIT, QD
     Route: 062
     Dates: start: 20110207, end: 2017
  31. RAMIPRIL. [Concomitant]
     Active Substance: RAMIPRIL
     Indication: PRODUCT USED FOR UNKNOWN INDICATION
     Dosage: 2.5 MILLIGRAM, QD
     Route: 048
     Dates: start: 20191113
  32. FOLSAEURE [Concomitant]
     Active Substance: FOLIC ACID
     Indication: PROPHYLAXIS
     Dosage: 5 MILLIGRAM, QD
     Route: 048
     Dates: start: 20190415
  33. NEBILET [Concomitant]
     Active Substance: NEBIVOLOL
     Dosage: 10 MILLIGRAM, QD
     Route: 048
     Dates: start: 20191113
  34. NATRIUMHYDROGENCARBONAT [Concomitant]
     Active Substance: SODIUM BICARBONATE
     Indication: PROPHYLAXIS
     Dosage: 2 GRAM, QD
     Route: 048
     Dates: start: 20190415
  35. FUROBETA [Concomitant]
     Active Substance: FUROSEMIDE
     Indication: CORONARY ARTERY DISEASE
     Dosage: 40 MILLIGRAM, QD
     Route: 048
     Dates: start: 20110613, end: 20190414
  36. PARACETAMOL [Concomitant]
     Active Substance: ACETAMINOPHEN
     Indication: PROPHYLAXIS
     Dosage: 500 MILLIGRAM AS NECESSARY
     Route: 048
     Dates: start: 20190415
  37. OMEPRAZOL [Concomitant]
     Active Substance: OMEPRAZOLE
     Indication: PROPHYLAXIS
     Dosage: 20 MILLIGRAM, QD
     Route: 048
     Dates: start: 20161129, end: 201805
  38. VOTRIENT [Suspect]
     Active Substance: PAZOPANIB HYDROCHLORIDE
     Dosage: 400 MILLIGRAM, QD
     Route: 048
     Dates: start: 20180809, end: 20181108
  39. VOTRIENT [Suspect]
     Active Substance: PAZOPANIB HYDROCHLORIDE
     Dosage: 400 MILLIGRAM, QD
     Route: 048
     Dates: start: 20190508, end: 20191108
  40. VOTRIENT [Suspect]
     Active Substance: PAZOPANIB HYDROCHLORIDE
     Dosage: 800 MILLIGRAM, QD
     Route: 048
     Dates: start: 20170209, end: 20170403
  41. MARCUMAR [Concomitant]
     Active Substance: PHENPROCOUMON
     Dosage: 3 MILLIGRAM, QD
     Route: 048
     Dates: start: 20110201, end: 20160925
  42. FERRO-SANOL DUODENAL [Concomitant]
     Active Substance: FERROUS GLYCINE SULFATE
     Indication: PROPHYLAXIS
     Dosage: 200 MILLIGRAM, QD
     Route: 048
     Dates: start: 20190415
  43. NOVALGIN (METAMIZOLE SODIUM) [Concomitant]
     Active Substance: METAMIZOLE SODIUM
     Indication: METASTASES TO BONE
     Dosage: 4.5 GRAM, QD
     Route: 048
     Dates: start: 20160714, end: 20171005
  44. VOTRIENT [Suspect]
     Active Substance: PAZOPANIB HYDROCHLORIDE
     Dosage: 800 MILLIGRAM, QD
     Route: 048
     Dates: start: 20161005, end: 20161108
  45. VOTRIENT [Suspect]
     Active Substance: PAZOPANIB HYDROCHLORIDE
     Dosage: 400 MILLIGRAM, QD
     Route: 048
     Dates: start: 20180310, end: 20180508
  46. ELIQUIS [Concomitant]
     Active Substance: APIXABAN
     Indication: CORONARY ARTERY DISEASE
     Dosage: 5 MILLIGRAM, QD
     Route: 048
     Dates: start: 20190415
  47. DUO [Concomitant]
     Indication: PRODUCT USED FOR UNKNOWN INDICATION
     Dosage: 20 MILLIGRAM
     Route: 065
  48. INSPRA [Concomitant]
     Active Substance: EPLERENONE
     Indication: CORONARY ARTERY DISEASE
     Dosage: 25 MILLIGRAM, QD
     Route: 048
     Dates: start: 20110613, end: 20180102
  49. DALTEPARIN [Concomitant]
     Active Substance: DALTEPARIN
     Indication: CORONARY ARTERY DISEASE
     Dosage: 5000 INTERNATIONAL UNIT, QD
     Route: 030
     Dates: start: 20170523, end: 201805
  50. CLOPIDOGREL [Concomitant]
     Active Substance: CLOPIDOGREL BISULFATE
     Indication: CORONARY ARTERY DISEASE
     Dosage: 75 MILLIGRAM, QD
     Route: 048
     Dates: start: 20190415
  51. NEBILET [Concomitant]
     Active Substance: NEBIVOLOL
     Indication: CORONARY ARTERY DISEASE
     Dosage: 5 MILLIGRAM, QD
     Route: 048
     Dates: start: 19911104, end: 20191112
  52. ZYLORIC [Concomitant]
     Active Substance: ALLOPURINOL
     Indication: HYPERURICAEMIA
     Dosage: 300 MILLIGRAM, QD
     Route: 048
     Dates: start: 20120206, end: 20190414
  53. COLECALCIFEROL [Concomitant]
     Active Substance: CHOLECALCIFEROL
     Indication: PROPHYLAXIS
     Dosage: 1000 INTERNATIONAL UNIT, QD
     Route: 048
     Dates: start: 20191113
  54. PRAXIS [Concomitant]
     Indication: PRODUCT USED FOR UNKNOWN INDICATION
     Dosage: 1 MILLILITER, QD
     Route: 058
     Dates: start: 20160925
  55. SPIRONOLACTON [Concomitant]
     Active Substance: SPIRONOLACTONE
     Indication: HYPERTENSION
     Dosage: 25 MG, QD
     Route: 048
     Dates: start: 20191113

REACTIONS (5)
  - Bursitis [Recovered/Resolved]
  - Dyspnoea [Unknown]
  - Hypertension [Recovered/Resolved]
  - Chest discomfort [Recovered/Resolved]
  - Oedema peripheral [Unknown]

NARRATIVE: CASE EVENT DATE: 20200331
